FAERS Safety Report 17166362 (Version 2)
Quarter: 2019Q4

REPORT INFORMATION
  Report Type: Report from Study
  Country: US (occurrence: US)
  Receive Date: 20191217
  Receipt Date: 20191226
  Transmission Date: 20200122
  Serious: Yes (Hospitalization)
  Sender: FDA-Public Use
  Company Number: US-ACTELION-A-US2019-191351

PATIENT
  Age: 27 Year
  Sex: Male

DRUGS (3)
  1. OPSUMIT [Suspect]
     Active Substance: MACITENTAN
     Indication: PULMONARY ARTERIAL HYPERTENSION
     Dosage: 10 MG, QD
     Route: 048
     Dates: start: 20181119
  2. VELETRI [Suspect]
     Active Substance: EPOPROSTENOL
     Dosage: 36.5 NG/KG, PER MIN
     Route: 042
  3. VELETRI [Suspect]
     Active Substance: EPOPROSTENOL
     Indication: PULMONARY ARTERIAL HYPERTENSION
     Dosage: 27.5 NG/KG, PER MIN
     Route: 042
     Dates: start: 201811

REACTIONS (6)
  - Catheter site pain [Recovered/Resolved]
  - Catheter site pruritus [Unknown]
  - Catheter management [Recovered/Resolved]
  - Catheter site erythema [Unknown]
  - Catheter site infection [Recovered/Resolved]
  - Catheter site irritation [Unknown]

NARRATIVE: CASE EVENT DATE: 201905
